FAERS Safety Report 23699572 (Version 1)
Quarter: 2024Q2

REPORT INFORMATION
  Report Type: Report from Study
  Country: US (occurrence: US)
  Receive Date: 20240402
  Receipt Date: 20240402
  Transmission Date: 20240716
  Serious: No
  Sender: FDA-Public Use
  Company Number: US-ACADIA PHARMACEUTICALS INC.-ACA-2024-PIM-001183

PATIENT
  Age: 79 Year
  Sex: Male

DRUGS (16)
  1. NUPLAZID [Suspect]
     Active Substance: PIMAVANSERIN TARTRATE
     Indication: Parkinson^s disease psychosis
     Dosage: 34 MILLIGRAM, QD
     Route: 048
     Dates: start: 20240305
  2. QUETIAPINE [Suspect]
     Active Substance: QUETIAPINE
     Dosage: 37.5MG QHS
  3. QUETIAPINE [Suspect]
     Active Substance: QUETIAPINE
     Dosage: 25 MILLIGRAM QHS
  4. AMLODIPINE [Concomitant]
     Active Substance: AMLODIPINE BESYLATE
  5. CARBIDOPA\LEVODOPA [Concomitant]
     Active Substance: CARBIDOPA\LEVODOPA
  6. CYANOCOBALAMIN [Concomitant]
     Active Substance: CYANOCOBALAMIN
     Route: 030
  7. DONEPEZIL [Concomitant]
     Active Substance: DONEPEZIL
  8. ENTACAPONE [Concomitant]
     Active Substance: ENTACAPONE
  9. FAMOTIDINE [Concomitant]
     Active Substance: FAMOTIDINE
  10. FINASTERIDE [Concomitant]
     Active Substance: FINASTERIDE
  11. FLUTICASONE [Concomitant]
     Active Substance: FLUTICASONE
  12. LOSARTAN [Concomitant]
     Active Substance: LOSARTAN
  13. MELATONIN [Concomitant]
     Active Substance: MELATONIN
  14. VITAMINS NOS [Concomitant]
     Active Substance: VITAMINS
  15. POTASSIUM CHLORIDE [Concomitant]
     Active Substance: POTASSIUM CHLORIDE
  16. PRAVASTATIN [Concomitant]
     Active Substance: PRAVASTATIN

REACTIONS (3)
  - Fatigue [Unknown]
  - Freezing phenomenon [Unknown]
  - Somnolence [Unknown]

NARRATIVE: CASE EVENT DATE: 20240305
